FAERS Safety Report 5040666-9 (Version None)
Quarter: 2006Q2

REPORT INFORMATION
  Report Type: 
  Country: None (occurrence: None)
  Receive Date: 20060629
  Receipt Date: 20060629
  Transmission Date: 20061013
  Serious: Yes (Other)
  Sender: FDA-Public Use
  Company Number: None

PATIENT
  Age: 80 Year
  Sex: Female
  Weight: 69.4003 kg

DRUGS (4)
  1. MYCOCIDE [Suspect]
     Indication: ONYCHOMYCOSIS
     Dosage: TOPICAL [SEVERAL DAYS]
     Route: 061
     Dates: start: 20060301
  2. MYCOCIDE [Suspect]
     Indication: TINEA INFECTION
     Dosage: TOPICAL [SEVERAL DAYS]
     Route: 061
     Dates: start: 20060301
  3. ATENOLOL [Concomitant]
  4. COUMADIN [Concomitant]

REACTIONS (3)
  - APPLICATION SITE VESICLES [None]
  - SKIN EXFOLIATION [None]
  - SKIN INFLAMMATION [None]
